FAERS Safety Report 18097757 (Version 1)
Quarter: 2020Q3

REPORT INFORMATION
  Report Type: Spontaneous
  Country: CH (occurrence: CH)
  Receive Date: 20200731
  Receipt Date: 20200731
  Transmission Date: 20201103
  Serious: Yes (Death, Other)
  Sender: FDA-Public Use
  Company Number: CH-TEVA-2020-CH-1795772

PATIENT
  Age: 74 Year
  Sex: Male

DRUGS (24)
  1. CEFEPIME [Concomitant]
     Active Substance: CEFEPIME HYDROCHLORIDE
     Dates: start: 20200401, end: 20200405
  2. FUROSEMIDE. [Concomitant]
     Active Substance: FUROSEMIDE
     Dates: start: 20200402, end: 20200410
  3. ASPIRIN. [Concomitant]
     Active Substance: ASPIRIN
     Dosage: 100 MG
     Dates: end: 20200331
  4. REYATAZ [Suspect]
     Active Substance: ATAZANAVIR SULFATE
     Dosage: 400 MG/DAY FROM 25 TO 31 MAR, EXCEPT 30 MAR: 800 MG/DAY
     Route: 048
     Dates: start: 20200325, end: 20200331
  5. MIDAZOLAM. [Concomitant]
     Active Substance: MIDAZOLAM
     Dates: start: 20200327, end: 20200417
  6. METOPROLOL. [Concomitant]
     Active Substance: METOPROLOL
     Dosage: 25?50 MG ON 28 MAR, 29 MAR, 5?6 APR
  7. HYDROCHLOROTHIAZIDE. [Concomitant]
     Active Substance: HYDROCHLOROTHIAZIDE
     Dates: start: 20200405, end: 20200412
  8. ACENOCOUMAROL [Concomitant]
     Active Substance: ACENOCOUMAROL
     Dosage: 2 MG
  9. ATORVASTATIN [Concomitant]
     Active Substance: ATORVASTATIN
     Dosage: 10 MG
  10. PARACETAMOL [Suspect]
     Active Substance: ACETAMINOPHEN
     Dosage: 500 MG AT 4G/DAY FROM 25 MAR TO 17 APR ORAL OR INTRAVENOUS
     Route: 065
     Dates: start: 20200325, end: 20200417
  11. PLAQUENIL [Suspect]
     Active Substance: HYDROXYCHLOROQUINE SULFATE
     Dosage: 400 MG: 2 DOSES 12 HOURS APART AROUND 25 MAR, THEN 200 MG/D FROM 26 MAR TO 28 MAR
     Route: 048
     Dates: start: 20200325, end: 20200328
  12. FENTANYL. [Concomitant]
     Active Substance: FENTANYL
     Dates: start: 20200326, end: 20200417
  13. N?ACETYLCYSTEINE [Concomitant]
     Active Substance: ACETYLCYSTEINE
     Dates: start: 20200407, end: 20200410
  14. TAMSULOSIN [Concomitant]
     Active Substance: TAMSULOSIN
     Dosage: 0.3 MG
  15. VITAMIN D3 [Concomitant]
     Active Substance: CHOLECALCIFEROL
  16. CO?AMOXI MEPHA [Suspect]
     Active Substance: AMOXICILLIN\CLAVULANIC ACID
     Dosage: IN TOTAL
     Route: 041
     Dates: start: 20200325, end: 20200325
  17. MEROPENEM. [Concomitant]
     Active Substance: MEROPENEM
     Dates: start: 20200405, end: 20200409
  18. SOTALOL. [Concomitant]
     Active Substance: SOTALOL
     Dosage: 80 MG, SUSPENDED ON ADMISSION, RESUMED FROM 08 APR TO 17 APR
  19. TAZOBAC [Suspect]
     Active Substance: PIPERACILLIN SODIUM\TAZOBACTAM SODIUM
     Route: 041
     Dates: start: 20200326, end: 20200401
  20. PROPOFOL. [Concomitant]
     Active Substance: PROPOFOL
     Dates: start: 20200326, end: 20200410
  21. ESOMEPRAZOLE. [Concomitant]
     Active Substance: ESOMEPRAZOLE MAGNESIUM
     Dosage: 40 MG/DAY
     Dates: start: 20200401, end: 20200417
  22. ENOXAPARIN [Concomitant]
     Active Substance: ENOXAPARIN
     Dates: start: 20200326
  23. ROCURONIUM [Concomitant]
     Active Substance: ROCURONIUM BROMIDE
     Dosage: 30MG FROM 27 MAR TO 06 APR THEN FROM 11 TO 14 APR
  24. KETAMINE [Concomitant]
     Active Substance: KETAMINE
     Dosage: FROM 01 APR TO 05 APR THEN FROM 10 APR TO 17 APR

REACTIONS (2)
  - Bundle branch block right [Unknown]
  - Hepatic enzyme increased [Recovering/Resolving]

NARRATIVE: CASE EVENT DATE: 20200328
